FAERS Safety Report 5888692-1 (Version None)
Quarter: 2008Q3

REPORT INFORMATION
  Report Type: 
  Country: None (occurrence: None)
  Receive Date: 20080917
  Receipt Date: 20080901
  Transmission Date: 20090109
  Serious: Yes (Other)
  Sender: FDA-Public Use
  Company Number: 001#1#2008-00525

PATIENT
  Age: 82 Year
  Sex: Male

DRUGS (6)
  1. NEUPRO [Suspect]
     Indication: PARKINSON'S DISEASE
     Dosage: 4 MG/24H (4 MG/24H 1 IN 1 DAY(S) )
     Route: 062
     Dates: start: 20080111, end: 20080711
  2. MADOPAR (BENSERAZIDE HYDROCHLORIDE, LEVODOPA) [Concomitant]
  3. AMANTADINE-SULFATE (AMANTADINE SULFATE) [Concomitant]
  4. FINASTERIDE [Concomitant]
  5. XIPAMIDE (XIPAMIDE) [Concomitant]
  6. MELPERONE-HYDROCHLORIDE (MELPERONE HYDROCHLORIDE) [Concomitant]

REACTIONS (2)
  - HALLUCINATION, VISUAL [None]
  - RESTLESSNESS [None]
